FAERS Safety Report 13516777 (Version 1)
Quarter: 2017Q2

REPORT INFORMATION
  Report Type: Spontaneous
  Country: GB (occurrence: GB)
  Receive Date: 20170505
  Receipt Date: 20170505
  Transmission Date: 20170830
  Serious: Yes (Other)
  Sender: FDA-Public Use
  Company Number: GB-TORRENT-00015220

PATIENT
  Age: 60 Year
  Sex: Female

DRUGS (3)
  1. LEVETIRACETAM. [Concomitant]
     Active Substance: LEVETIRACETAM
  2. AJMALINE [Suspect]
     Active Substance: AJMALINE
  3. LAMOTRIGINE. [Interacting]
     Active Substance: LAMOTRIGINE

REACTIONS (2)
  - Drug interaction [Recovered/Resolved]
  - Arrhythmia [Recovered/Resolved]
